FAERS Safety Report 8977654 (Version 2)
Quarter: 2013Q1

REPORT INFORMATION
  Report Type: Spontaneous
  Country: CH (occurrence: CH)
  Receive Date: 20121220
  Receipt Date: 20130125
  Transmission Date: 20140127
  Serious: Yes (Hospitalization)
  Sender: FDA-Public Use
  Company Number: CH-GLAXOSMITHKLINE-B0853619A

PATIENT
  Age: 52 Year
  Sex: Male

DRUGS (1)
  1. ARIXTRA [Suspect]
     Indication: PHLEBITIS
     Dosage: 15MG ALTERNATE DAYS
     Route: 058
     Dates: start: 20121125, end: 20121126

REACTIONS (4)
  - Drug level increased [Recovering/Resolving]
  - Drug prescribing error [Unknown]
  - Off label use [Unknown]
  - Overdose [Recovered/Resolved]
